FAERS Safety Report 21959809 (Version 1)
Quarter: 2023Q1

REPORT INFORMATION
  Report Type: Spontaneous
  Country: US (occurrence: US)
  Receive Date: 20230206
  Receipt Date: 20230206
  Transmission Date: 20230418
  Serious: No
  Sender: FDA-Public Use
  Company Number: DE-002147023-NVSC2021DE302407

PATIENT
  Age: 3 Month
  Sex: Male

DRUGS (1)
  1. EVEROLIMUS [Suspect]
     Active Substance: EVEROLIMUS
     Indication: Cardiac hypertrophy
     Dosage: UNK, (STEADY STATE DOSE 0.11 MG/KG/DAY)
     Route: 065

REACTIONS (1)
  - Off label use [Unknown]
